FAERS Safety Report 19778742 (Version 1)
Quarter: 2021Q3

REPORT INFORMATION
  Report Type: Spontaneous
  Country: JP (occurrence: JP)
  Receive Date: 20210902
  Receipt Date: 20210902
  Transmission Date: 20211014
  Serious: Yes (Hospitalization, Other)
  Sender: FDA-Public Use
  Company Number: JP-LEADINGPHARMA-JP-2021LEALIT00263

PATIENT
  Age: 66 Year
  Sex: Male

DRUGS (7)
  1. LORAZEPAM. [Suspect]
     Active Substance: LORAZEPAM
     Route: 065
  2. LORAZEPAM. [Suspect]
     Active Substance: LORAZEPAM
     Route: 065
  3. BLONANSERIN [Interacting]
     Active Substance: BLONANSERIN
     Indication: PSYCHOTIC SYMPTOM
     Route: 065
  4. BLONANSERIN [Interacting]
     Active Substance: BLONANSERIN
     Route: 065
  5. LITHIUM. [Interacting]
     Active Substance: LITHIUM
     Route: 065
  6. LORAZEPAM. [Suspect]
     Active Substance: LORAZEPAM
     Indication: CATATONIA
     Route: 065
  7. LITHIUM. [Interacting]
     Active Substance: LITHIUM
     Route: 065

REACTIONS (3)
  - Delirium [Recovered/Resolved]
  - Sedation [Recovered/Resolved]
  - Product use in unapproved indication [None]
